FAERS Safety Report 18001556 (Version 2)
Quarter: 2020Q3

REPORT INFORMATION
  Report Type: Report from Study
  Country: US (occurrence: US)
  Receive Date: 20200709
  Receipt Date: 20200826
  Transmission Date: 20201103
  Serious: No
  Sender: FDA-Public Use
  Company Number: NVSC2020US193179

PATIENT
  Age: 38 Year
  Sex: Male

DRUGS (1)
  1. COSENTYX [Suspect]
     Active Substance: SECUKINUMAB
     Indication: PSORIASIS
     Dosage: 300 MG, UNKNOWN
     Route: 058
     Dates: start: 202005

REACTIONS (7)
  - Gastritis [Unknown]
  - Abdominal pain upper [Unknown]
  - Eye swelling [Unknown]
  - Pain [Unknown]
  - Contusion [Unknown]
  - Dizziness [Unknown]
  - Eye paraesthesia [Unknown]

NARRATIVE: CASE EVENT DATE: 202006
